FAERS Safety Report 5398259-X (Version None)
Quarter: 2007Q3

REPORT INFORMATION
  Report Type: 
  Country: None (occurrence: None)
  Receive Date: 20070726
  Receipt Date: 20070716
  Transmission Date: 20080115
  Serious: Yes (Other)
  Sender: FDA-Public Use
  Company Number: US-PFIZER INC-2007059064

PATIENT
  Sex: Female

DRUGS (5)
  1. DOXYCYCLINE [Suspect]
     Indication: LYME DISEASE
     Route: 048
     Dates: start: 20070628, end: 20070702
  2. DOXYCYCLINE [Suspect]
     Route: 048
  3. TYLENOL W/ CODEINE [Suspect]
     Indication: PAIN
     Dosage: TEXT:1-2 TABLET
     Route: 048
     Dates: start: 20070628
  4. AMBIEN [Concomitant]
  5. GRAPE SEED EXTRACT [Concomitant]
     Dates: start: 20070628

REACTIONS (5)
  - ARTHRALGIA [None]
  - DRUG INEFFECTIVE [None]
  - DYSPEPSIA [None]
  - FACIAL PALSY [None]
  - INSOMNIA [None]
